FAERS Safety Report 17066209 (Version 1)
Quarter: 2019Q4

REPORT INFORMATION
  Report Type: Spontaneous
  Country: US (occurrence: US)
  Receive Date: 20191122
  Receipt Date: 20191122
  Transmission Date: 20200122
  Serious: No
  Sender: FDA-Public Use
  Company Number: US-PERRIGO-18US014864

PATIENT
  Sex: Male
  Weight: 49.89 kg

DRUGS (13)
  1. MULTIVITAMINS, PLAIN [Concomitant]
     Active Substance: VITAMINS
     Indication: SUPPLEMENTATION THERAPY
     Dosage: UNK
     Route: 065
  2. PRILOSEC [Concomitant]
     Active Substance: OMEPRAZOLE MAGNESIUM
     Indication: GASTROOESOPHAGEAL REFLUX DISEASE
     Dosage: UNK
     Route: 065
     Dates: start: 2014
  3. POLYETHYLENE GLYCOL 3350. [Suspect]
     Active Substance: POLYETHYLENE GLYCOL 3350
     Indication: CONSTIPATION
     Dosage: 51 TO 68 G, QD
     Route: 048
     Dates: start: 2017, end: 2017
  4. DOCUSATE SODIUM. [Concomitant]
     Active Substance: DOCUSATE SODIUM
     Indication: CONSTIPATION
     Dosage: UNK
     Route: 065
     Dates: start: 2014
  5. CITRULLINE [Concomitant]
     Active Substance: CITRULLINE
     Indication: DEPRESSION
     Dosage: UNK
     Route: 065
     Dates: start: 2004
  6. MYRBETRIQ [Concomitant]
     Active Substance: MIRABEGRON
     Indication: DEPRESSION
     Dosage: UNK
     Route: 065
     Dates: start: 2015
  7. POLYETHYLENE GLYCOL 3350. [Suspect]
     Active Substance: POLYETHYLENE GLYCOL 3350
     Dosage: 51 TO 68 G, QD
     Route: 048
     Dates: start: 20181119
  8. AZELASTINE. [Concomitant]
     Active Substance: AZELASTINE HYDROCHLORIDE
     Indication: RHINITIS
     Dosage: UNK
     Route: 065
     Dates: start: 2005
  9. FLUTICASONE. [Concomitant]
     Active Substance: FLUTICASONE
     Indication: RHINITIS
     Dosage: UNK
     Route: 065
     Dates: start: 2000
  10. PROLIA [Concomitant]
     Active Substance: DENOSUMAB
     Indication: OSTEOPOROSIS
     Dosage: PRN
     Route: 065
     Dates: start: 2016
  11. MINERAL OIL. [Concomitant]
     Active Substance: MINERAL OIL
     Indication: CONSTIPATION
     Dosage: UNK
     Route: 065
     Dates: start: 2000
  12. VITAMIN D3 [Concomitant]
     Active Substance: CHOLECALCIFEROL
     Indication: OSTEOPOROSIS
     Dosage: UNK
     Route: 065
     Dates: start: 2016
  13. LINZESS [Concomitant]
     Active Substance: LINACLOTIDE
     Indication: CONSTIPATION
     Dosage: UNK
     Route: 065
     Dates: start: 2016

REACTIONS (4)
  - Incorrect product administration duration [Unknown]
  - Wrong technique in product usage process [Unknown]
  - Drug ineffective [Unknown]
  - Overdose [Unknown]

NARRATIVE: CASE EVENT DATE: 2017
